FAERS Safety Report 21001262 (Version 1)
Quarter: 2022Q2

REPORT INFORMATION
  Report Type: Report from Study
  Country: US (occurrence: US)
  Receive Date: 20220624
  Receipt Date: 20220624
  Transmission Date: 20220720
  Serious: Yes (Hospitalization)
  Sender: FDA-Public Use
  Company Number: US-ABBVIE-22K-163-4444853-00

PATIENT
  Age: 69 Year
  Sex: Female

DRUGS (1)
  1. VENCLEXTA [Suspect]
     Active Substance: VENETOCLAX
     Indication: Acute lymphocytic leukaemia (in remission)
     Route: 048
     Dates: end: 20220621

REACTIONS (1)
  - Bone marrow transplant [Not Recovered/Not Resolved]

NARRATIVE: CASE EVENT DATE: 20220622
